FAERS Safety Report 13691325 (Version 1)
Quarter: 2017Q2

REPORT INFORMATION
  Report Type: Spontaneous
  Country: US (occurrence: US)
  Receive Date: 20170626
  Receipt Date: 20170626
  Transmission Date: 20170830
  Serious: Yes (Other)
  Sender: FDA-Public Use
  Company Number: US-ROCHE-608843

PATIENT
  Sex: Female

DRUGS (26)
  1. WELCHOL [Suspect]
     Active Substance: COLESEVELAM HYDROCHLORIDE
     Indication: BLOOD CHOLESTEROL
     Route: 065
  2. ACIDOPHILUS [Concomitant]
     Active Substance: LACTOBACILLUS ACIDOPHILUS
     Route: 048
  3. GLUCOSAMINE [Concomitant]
     Active Substance: GLUCOSAMINE
     Dosage: DRUG REPORTED AS: GLUCOSE COMPLEX
     Route: 048
  4. POTASSIUM [Concomitant]
     Active Substance: POTASSIUM
     Route: 065
  5. FUROSEMIDE. [Concomitant]
     Active Substance: FUROSEMIDE
     Route: 048
  6. MAG-OX [Concomitant]
     Active Substance: MAGNESIUM OXIDE
     Dosage: DRUG REPORTED AS: MAG-OXIDE
     Route: 048
  7. MURO 128 [Concomitant]
     Active Substance: SODIUM CHLORIDE
     Dosage: BOTH EYES, FOUR TIME DAILY, FORM DROPS
     Route: 047
  8. PREDNISOLONE ACETATE. [Concomitant]
     Active Substance: PREDNISOLONE ACETATE
     Dosage: DOSAGE: 1 GTT DAILY, ROUTE: OPTHALMIC DROPS
     Route: 047
  9. MAGNESIUM [Concomitant]
     Active Substance: MAGNESIUM
     Route: 065
  10. NEXIUM [Concomitant]
     Active Substance: ESOMEPRAZOLE MAGNESIUM
     Dosage: STRENGTH REPORTED AS: 40 MG OR CPDR
     Route: 048
  11. METHAZOLAMIDE. [Concomitant]
     Active Substance: METHAZOLAMIDE
     Route: 048
  12. SYNTHROID [Concomitant]
     Active Substance: LEVOTHYROXINE SODIUM
     Route: 048
  13. CELLCEPT [Suspect]
     Active Substance: MYCOPHENOLATE MOFETIL\MYCOPHENOLATE MOFETIL HYDROCHLORIDE
     Indication: PROPHYLAXIS AGAINST TRANSPLANT REJECTION
     Route: 048
  14. MYCOPHENOLATE MOFETIL. [Suspect]
     Active Substance: MYCOPHENOLATE MOFETIL
     Indication: PROPHYLAXIS AGAINST TRANSPLANT REJECTION
     Route: 048
  15. CITRACAL + D [Concomitant]
     Active Substance: CALCIUM CITRATE\VITAMIN D
     Dosage: DOSAGE: 630 MG/400U
     Route: 048
  16. ACETAMINOPHEN/HYDROCODONE [Concomitant]
     Active Substance: ACETAMINOPHEN\HYDROCODONE
     Indication: PAIN
     Dosage: DRUG: HYDROCODONE-ACETAMINOPHEN, STRENGTH: 5-500MG
     Route: 048
  17. NASONEX [Concomitant]
     Active Substance: MOMETASONE FUROATE
     Dosage: DOSE:50 MCG/ACTUATION; ONE SPRAY IN EACH NOSTRIL DAILY
     Route: 065
  18. PRESERVISION LUTEIN [Concomitant]
     Active Substance: MINERALS\VITAMINS
     Dosage: DRUG: PRESERVISION 226-200-5 MG-UNIT-MG, 1DAILY
     Route: 048
  19. FOLBIC [Concomitant]
     Active Substance: CYANOCOBALAMIN\FOLIC ACID\PYRIDOXINE
     Dosage: DRUG REPORTED AS ^FOBIC (B COMPLEX).
     Route: 065
  20. FOLTX [Concomitant]
     Active Substance: CYANOCOBALAMIN CO-57\FOLIC ACID\PYRIDOXINE HYDROCHLORIDE
     Route: 048
  21. K-DUR [Concomitant]
     Active Substance: POTASSIUM CHLORIDE
     Dosage: STRENGTH: 10 MEQ TBTQ
     Route: 048
  22. CARISOPRODOL. [Concomitant]
     Active Substance: CARISOPRODOL
     Route: 048
  23. MURO 128 [Concomitant]
     Active Substance: SODIUM CHLORIDE
     Dosage: BOTH EYES NIGHTLY
     Route: 047
  24. ZOCOR [Concomitant]
     Active Substance: SIMVASTATIN
     Dosage: RECEIVED ON MONDAY, WEDNESDAY AND FRIDAY
     Route: 048
  25. AMBIEN [Concomitant]
     Active Substance: ZOLPIDEM TARTRATE
     Dosage: ONE HALF TABLET AT BEDTIME
     Route: 048
  26. ACEBUTOLOL [Concomitant]
     Active Substance: ACEBUTOLOL
     Route: 048

REACTIONS (7)
  - Gastric disorder [Not Recovered/Not Resolved]
  - Blood pressure increased [Unknown]
  - Asthenia [Unknown]
  - Myalgia [Unknown]
  - Breast cancer metastatic [Not Recovered/Not Resolved]
  - Abdominal distension [Not Recovered/Not Resolved]
  - Low density lipoprotein increased [Unknown]

NARRATIVE: CASE EVENT DATE: 2002
